FAERS Safety Report 9266305 (Version 4)
Quarter: 2013Q3

REPORT INFORMATION
  Report Type: Report from Study
  Country: IT (occurrence: IT)
  Receive Date: 20130502
  Receipt Date: 20130815
  Transmission Date: 20140515
  Serious: Yes (Hospitalization)
  Sender: FDA-Public Use
  Company Number: IT-009507513-1305ITA000018

PATIENT
  Age: 54 Year
  Sex: Male
  Weight: 108 kg

DRUGS (7)
  1. REBETOL [Suspect]
     Indication: HEPATITIS C
     Dosage: 1200 MG
     Route: 048
     Dates: start: 20130315, end: 20130323
  2. PEGASYS [Suspect]
     Indication: HEPATITIS C
     Dosage: 180 MICROGRAM, QW
     Route: 058
     Dates: start: 20130315, end: 20130323
  3. FLUOXETIN [Concomitant]
     Indication: DEPRESSION
     Dosage: 40 MG, UNK
     Route: 048
  4. PREGABALIN [Concomitant]
     Indication: DEPRESSION
     Dosage: 300 MG, UNK
     Route: 048
  5. ALPRAZOLAM [Concomitant]
     Indication: DEPRESSION
     Dosage: 10 GTT, UNK
     Route: 048
  6. DELORAZEPAM [Concomitant]
     Indication: DEPRESSION
     Dosage: 15 GTT, QD
     Route: 048
  7. ACETAMINOPHEN [Concomitant]
     Indication: HEADACHE
     Dosage: 1000 MG, QD
     Route: 048
     Dates: start: 20130315, end: 20130323

REACTIONS (2)
  - Hyperbilirubinaemia [Recovering/Resolving]
  - Blood bilirubin increased [Recovering/Resolving]
